FAERS Safety Report 10723200 (Version 3)
Quarter: 2015Q1

REPORT INFORMATION
  Report Type: Spontaneous
  Country: US (occurrence: US)
  Receive Date: 20150120
  Receipt Date: 20150217
  Transmission Date: 20150721
  Serious: No
  Sender: FDA-Public Use
  Company Number: US-PFIZER INC-2015017315

PATIENT
  Age: 65 Year
  Sex: Female
  Weight: 68 kg

DRUGS (1)
  1. PHENYTOIN SODIUM. [Suspect]
     Active Substance: PHENYTOIN SODIUM
     Indication: SEIZURE
     Dosage: 400/500 MG, ALTERNATE DAY
     Route: 048
     Dates: start: 20150111

REACTIONS (2)
  - Hangover [Not Recovered/Not Resolved]
  - Mydriasis [Recovering/Resolving]

NARRATIVE: CASE EVENT DATE: 20150111
